FAERS Safety Report 25394646 (Version 1)
Quarter: 2025Q2

REPORT INFORMATION
  Report Type: Spontaneous
  Country: US (occurrence: US)
  Receive Date: 20250604
  Receipt Date: 20250604
  Transmission Date: 20250717
  Serious: No
  Sender: GLAXOSMITHKLINE
  Company Number: US-GSK-US2025068147

PATIENT
  Age: 53 Year
  Sex: Female

DRUGS (5)
  1. BENLYSTA [Suspect]
     Active Substance: BELIMUMAB
     Indication: Systemic lupus erythematosus
     Dosage: UNK UNK, WE
     Route: 058
     Dates: start: 202504
  2. AZATHIOPRINE [Concomitant]
     Active Substance: AZATHIOPRINE
     Indication: Product used for unknown indication
     Dosage: 50 MG, BID
  3. LEVOTHYROXINE [Concomitant]
     Active Substance: LEVOTHYROXINE
     Indication: Hypothyroidism
     Dosage: 75 UG, QD
  4. VITAMINS [Concomitant]
     Active Substance: VITAMINS
     Indication: Product used for unknown indication
  5. MINERALS [Concomitant]
     Active Substance: MINERALS
     Indication: Product used for unknown indication

REACTIONS (15)
  - Nausea [Unknown]
  - Dizziness [Unknown]
  - Headache [Unknown]
  - Blood pressure decreased [Unknown]
  - Anaemia [Unknown]
  - Decreased appetite [Unknown]
  - Gastrooesophageal reflux disease [Unknown]
  - Insomnia [Unknown]
  - Eye pain [Unknown]
  - Head discomfort [Unknown]
  - Abdominal discomfort [Unknown]
  - Feeling cold [Unknown]
  - Decreased appetite [Unknown]
  - Eye pain [Unknown]
  - Head discomfort [Unknown]

NARRATIVE: CASE EVENT DATE: 20250401
